FAERS Safety Report 6735133-8 (Version None)
Quarter: 2010Q2

REPORT INFORMATION
  Report Type: 
  Country: None (occurrence: None)
  Receive Date: 20100521
  Receipt Date: 20100513
  Transmission Date: 20101027
  Serious: Yes (Hospitalization, Other)
  Sender: FDA-Public Use
  Company Number: US-JNJFOC-20100401313

PATIENT
  Sex: Male

DRUGS (20)
  1. BLINDED; ABIRATERONE ACETATE [Suspect]
     Indication: PROSTATE CANCER METASTATIC
     Route: 048
  2. PLACEBO [Suspect]
     Indication: PROSTATE CANCER METASTATIC
     Route: 048
  3. PREDNISONE TAB [Suspect]
     Indication: PROSTATE CANCER METASTATIC
     Route: 048
  4. PREDNISONE TAB [Suspect]
     Route: 048
  5. IBUPROFEN [Suspect]
     Indication: HEADACHE
     Route: 048
  6. IBUPROFEN [Suspect]
     Indication: ARTHRITIS
     Route: 048
  7. IBUPROFEN [Suspect]
     Indication: PAIN
     Route: 048
  8. ACETAMINOPHEN [Concomitant]
     Indication: HEADACHE
     Route: 048
  9. ACETAMINOPHEN [Concomitant]
     Indication: ARTHRITIS
     Route: 048
  10. ACETAMINOPHEN [Concomitant]
     Indication: BACK PAIN
     Route: 048
  11. ACETAMINOPHEN [Concomitant]
     Indication: ARTHRALGIA
     Route: 048
  12. CALCIUM [Concomitant]
     Indication: MEDICAL DIET
     Route: 048
  13. FISH OIL [Concomitant]
     Indication: MEDICAL DIET
     Route: 048
  14. GREEN TEA EXTRACT [Concomitant]
     Indication: MEDICAL DIET
     Route: 048
  15. MULTI-VITAMINS [Concomitant]
     Indication: MEDICAL DIET
     Route: 048
  16. VITAMIN D [Concomitant]
     Indication: MEDICAL DIET
     Route: 048
  17. LUPRON [Concomitant]
     Indication: PROSTATE CANCER
     Route: 030
  18. ZOMETA [Concomitant]
     Indication: CANCER PAIN
     Route: 042
  19. LACTOBACILLUS NOS [Concomitant]
     Indication: MEDICAL DIET
     Route: 048
  20. FLUOXETINE [Concomitant]
     Indication: ANXIETY
     Route: 048

REACTIONS (7)
  - BARRETT'S OESOPHAGUS [None]
  - DIVERTICULUM [None]
  - GASTRIC ULCER [None]
  - GASTRITIS [None]
  - GASTROOESOPHAGEAL REFLUX DISEASE [None]
  - HIATUS HERNIA [None]
  - POLYP [None]
